FAERS Safety Report 18065943 (Version 1)
Quarter: 2020Q3

REPORT INFORMATION
  Report Type: Spontaneous
  Country: GB (occurrence: GB)
  Receive Date: 20200724
  Receipt Date: 20200724
  Transmission Date: 20201103
  Serious: Yes (Other)
  Sender: FDA-Public Use
  Company Number: GB-NOVOPROD-741223

PATIENT

DRUGS (1)
  1. NOVOMIX 30 [Suspect]
     Active Substance: INSULIN ASPART
     Indication: TYPE 2 DIABETES MELLITUS
     Dosage: UNK
     Route: 065
     Dates: start: 1996

REACTIONS (1)
  - Renal neoplasm [Not Recovered/Not Resolved]

NARRATIVE: CASE EVENT DATE: 201912
